FAERS Safety Report 9478395 (Version 1)
Quarter: 2013Q3

REPORT INFORMATION
  Report Type: Report from Study
  Country: US (occurrence: US)
  Receive Date: 20130827
  Receipt Date: 20130827
  Transmission Date: 20140515
  Serious: Yes (Other)
  Sender: FDA-Public Use
  Company Number: US-JNJFOC-20130813701

PATIENT
  Sex: 0

DRUGS (6)
  1. REMICADE [Suspect]
     Indication: COLITIS ULCERATIVE
     Route: 042
  2. ASACOL HD [Concomitant]
     Route: 065
  3. PREDNISONE [Concomitant]
     Route: 065
  4. PREDNISONE [Concomitant]
     Dosage: TAPERING DOWN
     Route: 065
  5. LEVOTHYROXINE [Concomitant]
     Route: 065
  6. DIOVAN [Concomitant]
     Indication: BLOOD PRESSURE
     Route: 065

REACTIONS (4)
  - Clostridium difficile infection [Unknown]
  - Salmonellosis [Unknown]
  - Decreased immune responsiveness [Unknown]
  - Colitis ulcerative [Unknown]
